FAERS Safety Report 9031135 (Version 1)
Quarter: 2013Q1

REPORT INFORMATION
  Report Type: Spontaneous
  Country: US (occurrence: US)
  Receive Date: 20130123
  Receipt Date: 20130123
  Transmission Date: 20140127
  Serious: Yes (Death)
  Sender: FDA-Public Use
  Company Number: US-TEVA-353477USA

PATIENT
  Sex: Female

DRUGS (6)
  1. PROPOFOL [Suspect]
  2. VICODIN [Suspect]
  3. CARBOXYMETHYLCELLULOSE SODIUM [Suspect]
  4. PROPACET [Suspect]
  5. HEPARIN [Suspect]
  6. ROSIGLITAZONE MALEATE [Concomitant]

REACTIONS (1)
  - Death [Fatal]
